FAERS Safety Report 4521065-2 (Version None)
Quarter: 2004Q4

REPORT INFORMATION
  Report Type: 
  Country: None (occurrence: None)
  Receive Date: 20041203
  Receipt Date: 20040812
  Transmission Date: 20050328
  Serious: Yes (Death)
  Sender: FDA-Public Use
  Company Number: 2004-119374-NL

PATIENT
  Age: 77 Year
  Sex: Male

DRUGS (5)
  1. DANAPAROID SODIUM [Suspect]
     Indication: DISSEMINATED INTRAVASCULAR COAGULATION
     Dosage: 2500 ANTI_XA
     Route: 042
     Dates: start: 20040206, end: 20040215
  2. SIVELESTAT [Concomitant]
  3. MEROPENEM [Concomitant]
  4. TEICOPLANIN [Concomitant]
  5. IMMUNE GLOBULIN INTRAVENOUS (HUMAN) [Concomitant]

REACTIONS (2)
  - OXYGEN SATURATION DECREASED [None]
  - PULMONARY HAEMORRHAGE [None]
